FAERS Safety Report 6246217-5 (Version None)
Quarter: 2009Q2

REPORT INFORMATION
  Report Type: 
  Country: None (occurrence: None)
  Receive Date: 20090626
  Receipt Date: 20090605
  Transmission Date: 20091009
  Serious: Yes (Other)
  Sender: FDA-Public Use
  Company Number: CH-BIOGENIDEC-2009BI018597

PATIENT
  Age: 30 Year
  Sex: Female
  Weight: 70 kg

DRUGS (1)
  1. TYSABRI [Suspect]
     Indication: RELAPSING-REMITTING MULTIPLE SCLEROSIS
     Route: 042
     Dates: start: 20081203, end: 20081230

REACTIONS (7)
  - ACUTE RESPIRATORY DISTRESS SYNDROME [None]
  - APHTHOUS STOMATITIS [None]
  - BONE PAIN [None]
  - CHRONIC FATIGUE SYNDROME [None]
  - HEADACHE [None]
  - HYPERSENSITIVITY [None]
  - VOMITING [None]
